FAERS Safety Report 24315502 (Version 1)
Quarter: 2024Q3

REPORT INFORMATION
  Report Type: Spontaneous
  Country: AU (occurrence: AU)
  Receive Date: 20240913
  Receipt Date: 20240913
  Transmission Date: 20241017
  Serious: Yes (Other)
  Sender: SANDOZ
  Company Number: AU-002147023-NVSC2022AU039335

PATIENT
  Age: 51 Year
  Sex: Male

DRUGS (8)
  1. AMPHOTERICIN B [Suspect]
     Active Substance: AMPHOTERICIN B
     Indication: Prophylaxis
     Dosage: 100 MG, TID
     Route: 042
  2. CYCLOPHOSPHAMIDE [Suspect]
     Active Substance: CYCLOPHOSPHAMIDE
     Indication: Fungal infection
     Dosage: UNK
     Route: 065
  3. DEXAMETHASONE [Suspect]
     Active Substance: DEXAMETHASONE
     Indication: Fungal infection
     Dosage: UNK
     Route: 065
  4. DOXORUBICIN HYDROCHLORIDE [Suspect]
     Active Substance: DOXORUBICIN HYDROCHLORIDE
     Indication: Fungal infection
     Dosage: UNK
     Route: 065
  5. MIDOSTAURIN [Suspect]
     Active Substance: MIDOSTAURIN
     Indication: Fungal infection
     Dosage: UNK
     Route: 065
  6. TERBINAFINE [Suspect]
     Active Substance: TERBINAFINE
     Indication: Fungal infection
     Dosage: 250 MG, BID (INTERVAL: 12 HOUR)
     Route: 048
  7. VORICONAZOLE [Suspect]
     Active Substance: VORICONAZOLE
     Indication: Fungal infection
     Dosage: 200 MG, BID (INTERVAL: 12 HOUR)
     Route: 048
  8. VINCRISTINE [Suspect]
     Active Substance: VINCRISTINE
     Indication: Fungal infection
     Dosage: UNK
     Route: 065

REACTIONS (3)
  - Coagulopathy [Unknown]
  - Febrile neutropenia [Unknown]
  - Drug ineffective [Unknown]
